FAERS Safety Report 11716415 (Version 1)
Quarter: 2015Q4

REPORT INFORMATION
  Report Type: Report from Study
  Country: US (occurrence: US)
  Receive Date: 20151109
  Receipt Date: 20151109
  Transmission Date: 20160304
  Serious: Yes (Death)
  Sender: FDA-Public Use
  Company Number: US-ASTRAZENECA-2015SF08574

PATIENT
  Sex: Female

DRUGS (1)
  1. MERREM IV [Suspect]
     Active Substance: MEROPENEM
     Indication: INFECTION
     Route: 042

REACTIONS (1)
  - Death [Fatal]
